FAERS Safety Report 6863242-1 (Version None)
Quarter: 2010Q3

REPORT INFORMATION
  Report Type: 
  Country: None (occurrence: None)
  Receive Date: 20100721
  Receipt Date: 20100715
  Transmission Date: 20110219
  Serious: Yes (Hospitalization)
  Sender: FDA-Public Use
  Company Number: PHHY2010CH46394

PATIENT
  Age: 63 Year
  Sex: Male

DRUGS (3)
  1. LIORESAL [Suspect]
     Indication: TRIGEMINAL NEURALGIA
     Dosage: 20 MG PER DAY
     Dates: start: 20100408, end: 20100419
  2. TEGRETOL [Suspect]
     Indication: TRIGEMINAL NEURALGIA
     Dosage: 1600 MG PER DAY
     Dates: start: 20100321, end: 20100419
  3. NEURONTIN [Concomitant]
     Indication: TRIGEMINAL NEURALGIA
     Dosage: UNK
     Dates: start: 20100401, end: 20100408

REACTIONS (8)
  - EOSINOPHIL COUNT INCREASED [None]
  - ERYTHEMA [None]
  - GENITAL ULCERATION [None]
  - MOUTH ULCERATION [None]
  - ORAL DISCOMFORT [None]
  - PRURITUS [None]
  - RASH [None]
  - RASH MACULO-PAPULAR [None]
